FAERS Safety Report 24823876 (Version 1)
Quarter: 2025Q1

REPORT INFORMATION
  Report Type: Spontaneous
  Country: US (occurrence: US)
  Receive Date: 20250109
  Receipt Date: 20250109
  Transmission Date: 20250409
  Serious: Yes (Other)
  Sender: STRIDES
  Company Number: US-STRIDES ARCOLAB LIMITED-2025SP000235

PATIENT
  Age: 26 Year
  Sex: Male

DRUGS (2)
  1. CABERGOLINE [Suspect]
     Active Substance: CABERGOLINE
     Indication: Prolactin-producing pituitary tumour
     Route: 065
  2. CABERGOLINE [Suspect]
     Active Substance: CABERGOLINE
     Indication: Hypothalamo-pituitary disorder
     Route: 065

REACTIONS (4)
  - Hernia [Recovered/Resolved]
  - Visual pathway disorder [Recovered/Resolved]
  - Visual acuity reduced [Recovered/Resolved]
  - Treatment noncompliance [Unknown]
